FAERS Safety Report 13232216 (Version 2)
Quarter: 2017Q1

REPORT INFORMATION
  Report Type: Report from Study
  Country: US (occurrence: US)
  Receive Date: 20170214
  Receipt Date: 20170328
  Transmission Date: 20170428
  Serious: Yes (Hospitalization)
  Sender: FDA-Public Use
  Company Number: US-HLSUS-2017-US-000044

PATIENT
  Age: 47 Year
  Sex: Male

DRUGS (1)
  1. CLOZAPINE. [Suspect]
     Active Substance: CLOZAPINE

REACTIONS (4)
  - Neutrophil count increased [Unknown]
  - Road traffic accident [Unknown]
  - Head injury [Unknown]
  - Rib fracture [Unknown]

NARRATIVE: CASE EVENT DATE: 2016
